FAERS Safety Report 4807811-9 (Version None)
Quarter: 2005Q4

REPORT INFORMATION
  Report Type: 
  Country: None (occurrence: None)
  Receive Date: 20051021
  Receipt Date: 20000211
  Transmission Date: 20060501
  Serious: No
  Sender: FDA-Public Use
  Company Number: US_000235640

PATIENT
  Age: 18 Year
  Sex: Male

DRUGS (2)
  1. ZYPREXA [Suspect]
     Indication: SCHIZOPHRENIA
     Dosage: 20 MG/1 IN THE EVENING
     Dates: start: 19991001
  2. COGENTIN [Concomitant]

REACTIONS (1)
  - WHITE BLOOD CELL COUNT DECREASED [None]
